FAERS Safety Report 4941582-0 (Version None)
Quarter: 2006Q1

REPORT INFORMATION
  Report Type: 
  Country: None (occurrence: None)
  Receive Date: 20060308
  Receipt Date: 20060228
  Transmission Date: 20060701
  Serious: Yes (Death, Hospitalization)
  Sender: FDA-Public Use
  Company Number: 2006JP000375

PATIENT
  Age: 82 Year
  Sex: Female

DRUGS (12)
  1. TACROLIMUS CAPSULES (TACROLIMUS CAPSULES) [Suspect]
     Indication: RHEUMATOID ARTHRITIS
     Dosage: 1.5 MG,  ORAL
     Route: 048
     Dates: start: 20051111, end: 20060215
  2. RHEUMATREX 9METHOTREXATE SODIUM) [Concomitant]
  3. PREDNISOLONE [Concomitant]
  4. MUCOSTA (REBAMIPIDE) [Concomitant]
  5. RISEDRONATE SODIUM [Concomitant]
  6. HEAVY KAMA G (MAGNESIUM OXIDE) [Concomitant]
  7. CALBLOCK PER ORAL [Concomitant]
  8. OLMETEC (OLMESARTAN MEDOXOMIL) [Concomitant]
  9. BISOPROLOL FUMARATE [Concomitant]
  10. SIGMART (NICORANDIL) [Concomitant]
  11. ALDACTONE [Concomitant]
  12. LIVALO (PITAVASTATIN CALCIUM) [Concomitant]

REACTIONS (1)
  - PNEUMOCYSTIS JIROVECI PNEUMONIA [None]
